FAERS Safety Report 17984080 (Version 7)
Quarter: 2020Q4

REPORT INFORMATION
  Report Type: Spontaneous
  Country: GB (occurrence: GB)
  Receive Date: 20200706
  Receipt Date: 20201229
  Transmission Date: 20210113
  Serious: Yes (Death, Hospitalization, Other)
  Sender: FDA-Public Use
  Company Number: GB-MYLANLABS-2020M1060528

PATIENT
  Age: 55 Year
  Sex: Male

DRUGS (1)
  1. CLOZARIL [Suspect]
     Active Substance: CLOZAPINE
     Indication: SCHIZOPHRENIA
     Dosage: UNK
     Route: 048
     Dates: start: 20010701

REACTIONS (10)
  - Asthenia [Unknown]
  - Death [Fatal]
  - COVID-19 [Unknown]
  - General physical health deterioration [Unknown]
  - White blood cell count decreased [Recovering/Resolving]
  - Condition aggravated [Unknown]
  - Agranulocytosis [Recovering/Resolving]
  - Oxygen saturation decreased [Unknown]
  - Lymphoma [Unknown]
  - Platelet count decreased [Recovered/Resolved]

NARRATIVE: CASE EVENT DATE: 20200605
